FAERS Safety Report 6300302-8 (Version None)
Quarter: 2009Q3

REPORT INFORMATION
  Report Type: 
  Country: None (occurrence: None)
  Receive Date: 20090804
  Receipt Date: 20090720
  Transmission Date: 20100115
  Serious: Yes (Other)
  Sender: FDA-Public Use
  Company Number: BR-1170306

PATIENT
  Age: 53 Year
  Sex: Female

DRUGS (1)
  1. TROPICAMIDE TROPICAMIDE) 1 %  OPHTHALMIC SOLUTION EYE DROPS, SOLUTION [Suspect]
     Dosage: OPHTHALMIC
     Route: 047

REACTIONS (4)
  - EYE OPERATION COMPLICATION [None]
  - IRIS ADHESIONS [None]
  - SURGICAL FAILURE [None]
  - WRONG TECHNIQUE IN DRUG USAGE PROCESS [None]
